FAERS Safety Report 7124583-6 (Version None)
Quarter: 2010Q4

REPORT INFORMATION
  Report Type: 
  Country: None (occurrence: None)
  Receive Date: 20101123
  Receipt Date: 20101123
  Transmission Date: 20110411
  Serious: Yes (Life-Threatening)
  Sender: FDA-Public Use
  Company Number: None

PATIENT
  Age: 69 Year
  Sex: Female
  Weight: 54.4316 kg

DRUGS (11)
  1. WINRHO [Suspect]
     Indication: IDIOPATHIC THROMBOCYTOPENIC PURPURA
     Dosage: 7500 UNITS ONCE IV BOLUS
     Route: 040
     Dates: start: 20100807, end: 20100807
  2. WINRHO [Suspect]
     Indication: IDIOPATHIC THROMBOCYTOPENIC PURPURA
     Dosage: 3750 UNITS ONCE IV BOLUS
     Route: 040
     Dates: start: 20100810, end: 20100810
  3. AMLODIPINE [Concomitant]
  4. ATENOLOL [Concomitant]
  5. ENALAPRIL [Concomitant]
  6. GLIPIZIDE [Concomitant]
  7. GUAIFENESIN [Concomitant]
  8. METOCLOPRAMIDE [Concomitant]
  9. ANASTROZOLE [Concomitant]
  10. CIPROFLOXACIN [Concomitant]
  11. PNEUMOVAX 23 [Concomitant]

REACTIONS (1)
  - HAEMOGLOBIN DECREASED [None]
